FAERS Safety Report 6369003-4 (Version None)
Quarter: 2009Q3

REPORT INFORMATION
  Report Type: 
  Country: None (occurrence: None)
  Receive Date: 20090922
  Receipt Date: 20090908
  Transmission Date: 20100115
  Serious: Yes (Other)
  Sender: FDA-Public Use
  Company Number: US-JNJFOC-20090903403

PATIENT
  Age: 72 Year
  Sex: Female
  Weight: 86.18 kg

DRUGS (2)
  1. MOTRIN IB [Suspect]
     Route: 048
  2. MOTRIN IB [Suspect]
     Indication: FALL
     Route: 048

REACTIONS (1)
  - STUPOR [None]
